FAERS Safety Report 4200016 (Version 1)
Quarter: 2020Q3

REPORT INFORMATION
  Report Type: Spontaneous
  Country: US (occurrence: None)
  Receive Date: 20040823
  Receipt Date: 20040823
  Transmission Date: 20201105
  Serious: Yes (Other)
  Sender: FDA-Public Use
  Company Number: None

PATIENT
  Age: 75 Year
  Sex: Male
  Weight: 84.9 kg

DRUGS (2)
  1. ATTAPULGITE, ACTIVATED\BISMUTH SUBSALICYLATE\KAOLIN\PECTIN [Suspect]
     Active Substance: ATTAPULGITE\BISMUTH SUBSALICYLATE\KAOLIN\PECTIN
     Indication: NAUSEA
     Dosage: 15CC  UP TO QID  ORAL
     Route: 048
     Dates: start: 19990101, end: 20040822
  2. SALICYLANILIDE. [Suspect]
     Active Substance: SALICYLANILIDE
     Indication: NAUSEA
     Dosage: 15CC  UP TO QID  ORAL
     Route: 048
     Dates: start: 19990101, end: 20040822

REACTIONS (1)
  - Medication error [None]
